FAERS Safety Report 7610779-3 (Version None)
Quarter: 2011Q3

REPORT INFORMATION
  Report Type: 
  Country: None (occurrence: None)
  Receive Date: 20110707
  Receipt Date: 20110622
  Transmission Date: 20111222
  Serious: Yes (Death)
  Sender: FDA-Public Use
  Company Number: 2011MA007920

PATIENT
  Age: 56 Year
  Sex: Male

DRUGS (7)
  1. CISPLATIN [Concomitant]
  2. PREDNISOLONE [Concomitant]
  3. ANTI-CD3 ANTIBODY [Concomitant]
  4. PROLEUKIN [Concomitant]
  5. PACLITAXEL [Concomitant]
  6. BETAMETHASONE DIPROPIONATE [Suspect]
     Indication: ADENOCARCINOMA
     Dosage: 12 MG; QD;
  7. GEFITINIB [Concomitant]

REACTIONS (4)
  - GENERAL PHYSICAL HEALTH DETERIORATION [None]
  - TREATMENT FAILURE [None]
  - CARCINOEMBRYONIC ANTIGEN INCREASED [None]
  - GASTROINTESTINAL HAEMORRHAGE [None]
